FAERS Safety Report 15736118 (Version 3)
Quarter: 2019Q1

REPORT INFORMATION
  Report Type: Spontaneous
  Country: FR (occurrence: FR)
  Receive Date: 20181218
  Receipt Date: 20190225
  Transmission Date: 20190417
  Serious: Yes (Life-Threatening)
  Sender: FDA-Public Use
  Company Number: FR-MYLANLABS-2018M1094201

PATIENT
  Age: 58 Year
  Sex: Male
  Weight: 95 kg

DRUGS (6)
  1. COTAREG [Suspect]
     Active Substance: HYDROCHLOROTHIAZIDE\VALSARTAN
     Indication: HYPERTENSION
     Dosage: INCONNUE
     Route: 048
  2. AMLODIPINE [Suspect]
     Active Substance: AMLODIPINE BESYLATE
     Indication: HYPERTENSION
     Dosage: INCONNUE
     Route: 048
  3. GLIVEC [Suspect]
     Active Substance: IMATINIB MESYLATE
     Indication: CHRONIC MYELOID LEUKAEMIA
     Dosage: UNK,INCONNUE
     Route: 048
  4. TASIGNA [Suspect]
     Active Substance: NILOTINIB
     Indication: CHRONIC MYELOID LEUKAEMIA
     Dosage: 600 MILLIGRAM, QD
     Route: 048
     Dates: start: 20170901
  5. TAREG [Suspect]
     Active Substance: VALSARTAN
     Indication: HYPERTENSION
     Dosage: INCONNUE
     Route: 048
  6. SPRYCEL [Suspect]
     Active Substance: DASATINIB
     Indication: CHRONIC MYELOID LEUKAEMIA
     Dosage: 1 DOSAGE FORM, QD
     Route: 048

REACTIONS (1)
  - Non-Hodgkin^s lymphoma [Not Recovered/Not Resolved]

NARRATIVE: CASE EVENT DATE: 20180507
